FAERS Safety Report 7053890-0 (Version None)
Quarter: 2010Q4

REPORT INFORMATION
  Report Type: 
  Country: None (occurrence: None)
  Receive Date: 20101020
  Receipt Date: 20101013
  Transmission Date: 20110411
  Serious: Yes (Other)
  Sender: FDA-Public Use
  Company Number: JP-BRISTOL-MYERS SQUIBB COMPANY-15320492

PATIENT
  Age: 24 Year
  Sex: Female
  Weight: 48 kg

DRUGS (7)
  1. VEPESID [Suspect]
     Indication: HISTIOCYTOSIS HAEMATOPHAGIC
     Dosage: 7DEC-7DEC09,10DEC09-10DEC09
     Route: 042
  2. VEPESID [Suspect]
     Indication: BONE MARROW FAILURE
     Dosage: 7DEC-7DEC09,10DEC09-10DEC09
     Route: 042
  3. ACYCLOVIR SODIUM [Suspect]
     Indication: HISTIOCYTOSIS HAEMATOPHAGIC
     Dates: start: 20091207
  4. IMMUNE GLOBULIN INTRAVENOUS (HUMAN) [Suspect]
     Indication: HISTIOCYTOSIS HAEMATOPHAGIC
     Route: 042
  5. CYCLOSPORINE [Suspect]
     Indication: HISTIOCYTOSIS HAEMATOPHAGIC
     Dates: start: 20091207
  6. DEXAMETHASONE [Suspect]
     Indication: HISTIOCYTOSIS HAEMATOPHAGIC
     Dates: start: 20091207
  7. METHYLPREDNISOLONE [Suspect]
     Indication: HISTIOCYTOSIS HAEMATOPHAGIC
     Dosage: 03DEC09 1000MG FOR 3DAYS,06DEC09 250MG ADMINISTERED.
     Dates: start: 20091203

REACTIONS (3)
  - ABORTION SPONTANEOUS [None]
  - INTRA-UTERINE DEATH [None]
  - PREGNANCY [None]
